FAERS Safety Report 17740518 (Version 3)
Quarter: 2021Q2

REPORT INFORMATION
  Report Type: Spontaneous
  Country: US (occurrence: US)
  Receive Date: 20200504
  Receipt Date: 20210414
  Transmission Date: 20210716
  Serious: No
  Sender: FDA-Public Use
  Company Number: US-SA-2020SA113743

PATIENT
  Age: 14 Year
  Sex: Male

DRUGS (14)
  1. DUPIXENT [Suspect]
     Active Substance: DUPILUMAB
     Indication: TRICUSPID VALVE DISEASE
  2. SINGULAIR [Concomitant]
     Active Substance: MONTELUKAST SODIUM
     Route: 065
  3. ZYRTEC [Concomitant]
     Active Substance: CETIRIZINE HYDROCHLORIDE
     Route: 065
  4. DUPIXENT [Suspect]
     Active Substance: DUPILUMAB
     Indication: DERMATITIS ATOPIC
     Dosage: 400 MG, 1X
     Route: 058
     Dates: start: 20200414, end: 20200414
  5. DUPIXENT [Suspect]
     Active Substance: DUPILUMAB
     Indication: RHEUMATIC DISORDER
  6. DUPIXENT [Suspect]
     Active Substance: DUPILUMAB
     Indication: VITAMIN B COMPLEX DEFICIENCY
  7. DUPIXENT [Suspect]
     Active Substance: DUPILUMAB
     Indication: HYPOTHYROIDISM
  8. DUPIXENT [Suspect]
     Active Substance: DUPILUMAB
     Indication: THYROIDITIS
  9. TRIAMCINOLON [TRIAMCINOLONE] [Concomitant]
     Active Substance: TRIAMCINOLONE
     Route: 065
  10. DUPIXENT [Suspect]
     Active Substance: DUPILUMAB
     Indication: TESTICULAR DISORDER
  11. XYZAL [Concomitant]
     Active Substance: LEVOCETIRIZINE DIHYDROCHLORIDE
     Route: 065
  12. DUPIXENT [Suspect]
     Active Substance: DUPILUMAB
     Indication: ADRENAL DISORDER
     Dosage: 200 MG, QOW
     Route: 058
     Dates: start: 2020
  13. PROTOPIC [Concomitant]
     Active Substance: TACROLIMUS
     Route: 065
  14. MONTELUKAST [Concomitant]
     Active Substance: MONTELUKAST SODIUM
     Route: 065

REACTIONS (4)
  - Eczema [Not Recovered/Not Resolved]
  - Condition aggravated [Unknown]
  - Dermatitis atopic [Recovering/Resolving]
  - Product use in unapproved indication [Unknown]

NARRATIVE: CASE EVENT DATE: 2020
